FAERS Safety Report 9105440 (Version 2)
Quarter: 2013Q1

REPORT INFORMATION
  Report Type: Spontaneous
  Country: DE (occurrence: JP)
  Receive Date: 20130220
  Receipt Date: 20130318
  Transmission Date: 20140127
  Serious: Yes (Life-Threatening, Other)
  Sender: FDA-Public Use
  Company Number: JP-FRI-1000042669

PATIENT
  Age: 89 None
  Sex: Male

DRUGS (13)
  1. MEMANTINE [Suspect]
     Indication: DEMENTIA ALZHEIMER^S TYPE
     Dosage: 5 MG
     Route: 048
     Dates: start: 20110805, end: 20110818
  2. MEMANTINE [Suspect]
     Dosage: 10 MG
     Route: 048
     Dates: start: 20110819, end: 20111020
  3. MEMANTINE [Suspect]
     Dosage: 5 MG
     Route: 048
     Dates: start: 20111021, end: 20120209
  4. MEMANTINE [Suspect]
     Dosage: 10 MG
     Route: 048
     Dates: start: 20120210, end: 20121004
  5. MEMANTINE [Suspect]
     Indication: DEMENTIA ALZHEIMER^S TYPE
     Dosage: 15 MG
     Route: 048
     Dates: start: 20121005, end: 20130111
  6. ARICEPT [Concomitant]
     Indication: DEMENTIA
     Dosage: 5 MG
     Route: 048
     Dates: start: 200410, end: 20090410
  7. ARICEPT [Concomitant]
     Indication: DEMENTIA
     Dosage: 10 MG
     Route: 048
     Dates: start: 20090410, end: 20111111
  8. ARICEPT D [Concomitant]
     Indication: DEMENTIA
     Dosage: 10 MG
     Route: 048
     Dates: start: 20111111
  9. ARICEPT D [Concomitant]
     Indication: DEMENTIA
  10. RISPERDAL [Concomitant]
     Dosage: 1 MG
     Route: 048
     Dates: start: 20070518
  11. JUVELA [Concomitant]
     Dosage: 450 MG
     Route: 048
     Dates: start: 20070518
  12. CINAL [Concomitant]
     Dosage: 1800 MG
     Route: 048
     Dates: start: 20070518
  13. HARNAL [Concomitant]
     Indication: BENIGN PROSTATIC HYPERPLASIA
     Dosage: 0.6 MG
     Route: 048
     Dates: start: 20080307

REACTIONS (3)
  - Cardio-respiratory arrest [Recovered/Resolved]
  - Loss of consciousness [Recovered/Resolved]
  - Tremor [Unknown]
